FAERS Safety Report 14354568 (Version 1)
Quarter: 2018Q1

REPORT INFORMATION
  Report Type: Spontaneous
  Country: US (occurrence: US)
  Receive Date: 20180105
  Receipt Date: 20180105
  Transmission Date: 20180509
  Serious: Yes (Hospitalization, Other)
  Sender: FDA-Public Use
  Company Number: US-ASTELLAS-2018US000475

PATIENT
  Sex: Male

DRUGS (1)
  1. XTANDI [Suspect]
     Active Substance: ENZALUTAMIDE
     Indication: PROSTATE CANCER
     Route: 065
     Dates: start: 20170228, end: 20171028

REACTIONS (5)
  - Muscular weakness [Unknown]
  - Urinary tract infection [Unknown]
  - Fall [Unknown]
  - Sepsis [Unknown]
  - Underdose [Unknown]
